FAERS Safety Report 4901787-1 (Version None)
Quarter: 2006Q1

REPORT INFORMATION
  Report Type: 
  Country: None (occurrence: None)
  Receive Date: 20060201
  Receipt Date: 20060201
  Transmission Date: 20060701
  Serious: Yes (Hospitalization)
  Sender: FDA-Public Use
  Company Number: None

PATIENT
  Age: 74 Year
  Sex: Male
  Weight: 96.6162 kg

DRUGS (13)
  1. SPIRONOLACTONE [Suspect]
     Indication: CARDIAC FAILURE CONGESTIVE
     Dosage: ONE TABLET PO DAILY
     Route: 048
  2. BISACODYL [Concomitant]
  3. GEMFIBROZIL [Concomitant]
  4. HYDRALAZINE HCL [Concomitant]
  5. OMEPRAZOLE [Concomitant]
  6. SENNOSIDES [Concomitant]
  7. SIMVASTATIN [Concomitant]
  8. TAMSULOSIN HCL [Concomitant]
  9. UREA [Concomitant]
  10. HUMULIN N [Concomitant]
  11. HUMULIN R [Concomitant]
  12. ISOSORBIDE MONONITRATE (SUSTAINED REL) [Concomitant]
  13. METOPROLOL SUCCINATE [Concomitant]

REACTIONS (4)
  - BALANCE DISORDER [None]
  - DYSPNOEA [None]
  - HYPERKALAEMIA [None]
  - TREMOR [None]
